FAERS Safety Report 11271918 (Version 1)
Quarter: 2015Q3

REPORT INFORMATION
  Report Type: Spontaneous
  Country: US (occurrence: None)
  Receive Date: 20150713
  Receipt Date: 20150713
  Transmission Date: 20151125
  Serious: Yes (Other)
  Sender: FDA-Public Use
  Company Number: None

PATIENT
  Age: 53 Year
  Sex: Female
  Weight: 60.78 kg

DRUGS (16)
  1. ADVAIR HFA [Concomitant]
     Active Substance: FLUTICASONE PROPIONATE\SALMETEROL XINAFOATE
  2. ALENDRONATE SODIUM. [Suspect]
     Active Substance: ALENDRONATE SODIUM
     Indication: OSTEOPOROSIS
     Dosage: 1 PILL WEEKLY TAKEN UNDER THE TONGUE
     Route: 060
     Dates: start: 20150301, end: 20150701
  3. TRIAMTERE/HCTZ [Concomitant]
  4. MIRENA [Concomitant]
     Active Substance: LEVONORGESTREL
  5. TYLENOL [Concomitant]
     Active Substance: ACETAMINOPHEN
  6. MILK OF MAGNESIA [Concomitant]
     Active Substance: MAGNESIUM HYDROXIDE
  7. LEVOTHYROXIN [Concomitant]
     Active Substance: LEVOTHYROXINE
  8. MAXAIR [Concomitant]
     Active Substance: PIRBUTEROL ACETATE
  9. VITAMIN [Concomitant]
     Active Substance: VITAMINS
  10. D3 [Concomitant]
     Active Substance: 25-HYDROXYCHOLECALCIFEROL, 5-TRANS-
  11. CALCIUM [Concomitant]
     Active Substance: CALCIUM
  12. ALENDRONATE SODIUM. [Suspect]
     Active Substance: ALENDRONATE SODIUM
     Indication: OSTEOPENIA
     Dosage: 1 PILL WEEKLY TAKEN UNDER THE TONGUE
     Route: 060
     Dates: start: 20150301, end: 20150701
  13. CITALOPRAM [Concomitant]
     Active Substance: CITALOPRAM HYDROBROMIDE
  14. MIRALAX [Concomitant]
     Active Substance: POLYETHYLENE GLYCOL 3350
  15. PRAVASTATIN [Concomitant]
     Active Substance: PRAVASTATIN\PRAVASTATIN SODIUM
  16. ALDENDRONATE [Concomitant]

REACTIONS (3)
  - Back pain [None]
  - Arthralgia [None]
  - Movement disorder [None]

NARRATIVE: CASE EVENT DATE: 20150301
